FAERS Safety Report 7649749-8 (Version None)
Quarter: 2011Q3

REPORT INFORMATION
  Report Type: 
  Country: None (occurrence: None)
  Receive Date: 20110802
  Receipt Date: 20110720
  Transmission Date: 20111222
  Serious: Yes (Hospitalization)
  Sender: FDA-Public Use
  Company Number: US-ELI_LILLY_AND_COMPANY-US201105005131

PATIENT
  Sex: Female

DRUGS (2)
  1. CYMBALTA [Suspect]
     Dosage: 90 MG, QD
     Dates: start: 20110401, end: 20110501
  2. CYMBALTA [Suspect]
     Dosage: 120 MG, QD
     Dates: start: 20110501

REACTIONS (1)
  - HOSPITALISATION [None]
